FAERS Safety Report 17577126 (Version 1)
Quarter: 2020Q1

REPORT INFORMATION
  Report Type: Spontaneous
  Country: CN (occurrence: CN)
  Receive Date: 20200324
  Receipt Date: 20200324
  Transmission Date: 20200409
  Serious: Yes (Hospitalization)
  Sender: FDA-Public Use
  Company Number: CN-PFIZER INC-2020122956

PATIENT
  Age: 7 Week
  Sex: Female
  Weight: 5 kg

DRUGS (1)
  1. CEFOPERAZONE SODIUM [Suspect]
     Active Substance: CEFOPERAZONE SODIUM
     Indication: URINARY TRACT INFECTION
     Dosage: 0.15 G, 3X/DAY
     Route: 041
     Dates: start: 20200225, end: 20200227

REACTIONS (2)
  - Infantile vomiting [Recovered/Resolved]
  - Rash erythematous [Unknown]

NARRATIVE: CASE EVENT DATE: 20200226
